FAERS Safety Report 5570034-2 (Version None)
Quarter: 2007Q4

REPORT INFORMATION
  Report Type: 
  Country: None (occurrence: None)
  Receive Date: 20071217
  Receipt Date: 20071114
  Transmission Date: 20080405
  Serious: Yes (Hospitalization)
  Sender: FDA-Public Use
  Company Number: 2007EU002640

PATIENT
  Age: 49 Year
  Sex: Male

DRUGS (6)
  1. TACROLIMUS [Suspect]
     Indication: RENAL TRANSPLANT
     Dosage: DF, /D
  2. MYCOPHENOLATE MOFETIL [Suspect]
     Indication: RENAL TRANSPLANT
     Dosage: DF, /D
  3. PREDNISONE [Suspect]
     Indication: RENAL TRANSPLANT
     Dosage: DF, D,
  4. AMPHOTERICIN B [Concomitant]
  5. FLUOROCYTOSINE (FLUCYTOSINE) [Concomitant]
  6. FLUCONAZOLE [Concomitant]

REACTIONS (16)
  - BLOOD CULTURE POSITIVE [None]
  - CELLULITIS [None]
  - COMPLICATIONS OF TRANSPLANTED KIDNEY [None]
  - CRYPTOCOCCOSIS [None]
  - DISEASE RECURRENCE [None]
  - GIARDIASIS [None]
  - IMMUNE RECONSTITUTION SYNDROME [None]
  - KIDNEY TRANSPLANT REJECTION [None]
  - LUNG INFECTION [None]
  - LYMPH NODE PAIN [None]
  - LYMPHADENOPATHY [None]
  - MYCOBACTERIAL INFECTION [None]
  - OPPORTUNISTIC INFECTION [None]
  - PNEUMONIA HERPES VIRAL [None]
  - RENAL FAILURE ACUTE [None]
  - SEPSIS [None]
